FAERS Safety Report 8548134-4 (Version None)
Quarter: 2012Q3

REPORT INFORMATION
  Report Type: 
  Country: None (occurrence: None)
  Receive Date: 20120730
  Receipt Date: 20120717
  Transmission Date: 20120928
  Serious: Yes (Other)
  Sender: FDA-Public Use
  Company Number: US-BIOGENIDEC-2012BI019572

PATIENT
  Age: 46 Year
  Sex: Female

DRUGS (7)
  1. TYSABRI [Suspect]
     Indication: MULTIPLE SCLEROSIS
     Route: 042
     Dates: start: 20101007, end: 20120401
  2. VITAMIN B COMPLEX CAP [Concomitant]
  3. TYSABRI [Suspect]
     Route: 042
     Dates: start: 20120601
  4. TERBINAFINE HCL [Concomitant]
     Route: 048
  5. LIDOCAINE [Concomitant]
  6. AMANTADINE HCL [Concomitant]
     Indication: FATIGUE
     Route: 048
  7. VITAMIN TAB [Concomitant]

REACTIONS (6)
  - RADIATION NEUROPATHY [None]
  - HAEMATOCHEZIA [None]
  - DEPRESSION [None]
  - EYELID PTOSIS [None]
  - BALANCE DISORDER [None]
  - OSTEOARTHRITIS [None]
